FAERS Safety Report 7814424-3 (Version None)
Quarter: 2011Q4

REPORT INFORMATION
  Report Type: 
  Country: None (occurrence: None)
  Receive Date: 20111014
  Receipt Date: 20111004
  Transmission Date: 20120403
  Serious: Yes (Hospitalization, Other)
  Sender: FDA-Public Use
  Company Number: PHFR2011GB01828

PATIENT
  Sex: Male

DRUGS (9)
  1. CLOZARIL [Suspect]
     Route: 048
     Dates: start: 20110901, end: 20110923
  2. AMISULPRIDE [Suspect]
     Indication: SCHIZOPHRENIA
     Route: 065
  3. VALPROATE SODIUM [Concomitant]
     Dosage: 1 G, BID
     Route: 065
  4. OLANZAPINE [Concomitant]
     Dosage: 5 MG, BID
     Route: 065
  5. RANITIDINE [Concomitant]
     Dosage: 150 MG, BID
     Route: 065
  6. CLOZARIL [Suspect]
     Indication: SCHIZOPHRENIA
     Route: 048
     Dates: start: 20080905, end: 20110307
  7. ASPIRIN [Concomitant]
     Dosage: 75 MG, QD
     Route: 065
  8. SULPIRIDE [Concomitant]
     Dosage: 600 MG, BID
     Route: 065
  9. SENNA [Concomitant]
     Route: 065

REACTIONS (15)
  - CONVULSION [None]
  - NEUROLEPTIC MALIGNANT SYNDROME [None]
  - LOWER RESPIRATORY TRACT INFECTION [None]
  - ELECTROCARDIOGRAM QT PROLONGED [None]
  - PNEUMONIA [None]
  - OEDEMA [None]
  - COMA SCALE ABNORMAL [None]
  - LOSS OF CONSCIOUSNESS [None]
  - SCHIZOPHRENIA [None]
  - VENTRICULAR DYSFUNCTION [None]
  - SICK SINUS SYNDROME [None]
  - MOBILITY DECREASED [None]
  - PARKINSONISM [None]
  - ECG SIGNS OF MYOCARDIAL ISCHAEMIA [None]
  - BRADYCARDIA [None]
